FAERS Safety Report 21263038 (Version 1)
Quarter: 2022Q3

REPORT INFORMATION
  Report Type: Spontaneous
  Country: US (occurrence: None)
  Receive Date: 20220826
  Receipt Date: 20220826
  Transmission Date: 20221027
  Serious: Yes (Hospitalization, Disabling, Other)
  Sender: FDA-Public Use
  Company Number: None

PATIENT
  Age: 20 Year
  Sex: Male
  Weight: 72 kg

DRUGS (2)
  1. RISPERIDONE [Suspect]
     Active Substance: RISPERIDONE
     Indication: Depression
     Dosage: 1 INJECTION
  2. LEXAPRO [Suspect]
     Active Substance: ESCITALOPRAM OXALATE

REACTIONS (10)
  - Dystonia [None]
  - Akathisia [None]
  - Occipital neuralgia [None]
  - Drug monitoring procedure not performed [None]
  - Surgery [None]
  - Quality of life decreased [None]
  - Sexual dysfunction [None]
  - Sedation [None]
  - Autoimmune disorder [None]
  - Fear of disease [None]

NARRATIVE: CASE EVENT DATE: 20200701
